FAERS Safety Report 12743850 (Version 1)
Quarter: 2016Q3

REPORT INFORMATION
  Report Type: Spontaneous
  Country: KR (occurrence: KR)
  Receive Date: 20160914
  Receipt Date: 20160914
  Transmission Date: 20161109
  Serious: Yes (Other)
  Sender: FDA-Public Use
  Company Number: KR-PFIZER INC-2016427719

PATIENT
  Age: 65 Year
  Sex: Male

DRUGS (1)
  1. VIAGRA [Suspect]
     Active Substance: SILDENAFIL CITRATE
     Dosage: 15 TABLETS (750 MG)
     Route: 048

REACTIONS (5)
  - Colour vision tests abnormal [Recovering/Resolving]
  - Overdose [Recovering/Resolving]
  - Visual field defect [Recovering/Resolving]
  - Retinogram abnormal [Recovering/Resolving]
  - Visual impairment [Recovering/Resolving]
